FAERS Safety Report 12728193 (Version 1)
Quarter: 2016Q3

REPORT INFORMATION
  Report Type: Spontaneous
  Country: US (occurrence: US)
  Receive Date: 20160907
  Receipt Date: 20160907
  Transmission Date: 20161109
  Serious: Yes (Other)
  Sender: FDA-Public Use
  Company Number: None

PATIENT
  Age: 94 Year
  Sex: Female
  Weight: 63 kg

DRUGS (1)
  1. ELIQUIS [Suspect]
     Active Substance: APIXABAN
     Indication: CEREBROVASCULAR ACCIDENT PROPHYLAXIS
     Dosage: 1 TABLET TWICE A DAY ORAL
     Route: 048
     Dates: start: 20160701

REACTIONS (3)
  - Dizziness [None]
  - Vision blurred [None]
  - Headache [None]

NARRATIVE: CASE EVENT DATE: 20160701
